FAERS Safety Report 9060984 (Version 1)
Quarter: 2013Q1

REPORT INFORMATION
  Report Type: Spontaneous
  Country: CO (occurrence: CO)
  Receive Date: 20130213
  Receipt Date: 20130213
  Transmission Date: 20140127
  Serious: Yes (Other)
  Sender: FDA-Public Use
  Company Number: CO-009507513-1302COL004608

PATIENT
  Age: 35 Year
  Sex: Female

DRUGS (4)
  1. ISENTRESS [Suspect]
     Indication: HIV INFECTION
     Dosage: UNK, Q12H
     Route: 048
     Dates: start: 20120910
  2. RALTEGRAVIR POTASSIUM [Suspect]
     Indication: HIV INFECTION
     Dosage: UNK, Q12H
     Route: 048
     Dates: start: 20120910
  3. ZIDOVUDINE [Concomitant]
  4. LAMIVUDINE [Concomitant]

REACTIONS (1)
  - Drug resistance [Unknown]
